FAERS Safety Report 26203434 (Version 1)
Quarter: 2025Q4

REPORT INFORMATION
  Report Type: Spontaneous
  Country: US (occurrence: None)
  Receive Date: 20251223
  Receipt Date: 20251223
  Transmission Date: 20260118
  Serious: Yes (Hospitalization)
  Sender: FDA-CTU
  Company Number: None

PATIENT
  Age: 76 Year
  Sex: Male
  Weight: 54 kg

DRUGS (2)
  1. PREZCOBIX [Suspect]
     Active Substance: COBICISTAT\DARUNAVIR ETHANOLATE
     Indication: HIV infection
     Dosage: 800 MG DAILY ORAL
     Route: 048
     Dates: start: 20250305, end: 20251222
  2. TELMISARTAN [Suspect]
     Active Substance: TELMISARTAN
     Dosage: 80 MG DAILY ORAL
     Route: 048
     Dates: start: 20210208, end: 20220208

REACTIONS (5)
  - Electrolyte imbalance [None]
  - Dehydration [None]
  - Hyponatraemia [None]
  - Hypophosphataemia [None]
  - Therapy interrupted [None]

NARRATIVE: CASE EVENT DATE: 20251222
